FAERS Safety Report 5351983-7 (Version None)
Quarter: 2007Q2

REPORT INFORMATION
  Report Type: 
  Country: None (occurrence: None)
  Receive Date: 20070611
  Receipt Date: 20070606
  Transmission Date: 20071010
  Serious: Yes (Death, Hospitalization)
  Sender: FDA-Public Use
  Company Number: PHEH2007US08372

PATIENT
  Age: 74 Year
  Sex: Male

DRUGS (1)
  1. ZELNORM [Suspect]
     Dates: start: 20061018

REACTIONS (3)
  - AORTIC ANEURYSM [None]
  - AORTIC ANEURYSM REPAIR [None]
  - VENTRICULAR ARRHYTHMIA [None]
